FAERS Safety Report 9419691 (Version 1)
Quarter: 2013Q3

REPORT INFORMATION
  Report Type: Spontaneous
  Country: US (occurrence: None)
  Receive Date: 20130723
  Receipt Date: 20130723
  Transmission Date: 20140515
  Serious: Yes (Other)
  Sender: FDA-Public Use
  Company Number: 001566019A

PATIENT
  Age: 50 Year
  Sex: Female

DRUGS (4)
  1. PROACTIV RENEWING CLEANSER [Suspect]
     Indication: ACNE
     Route: 062
     Dates: start: 20121203, end: 20121204
  2. PROACTIV REPAIRING TREATMENT [Suspect]
     Indication: ACNE
     Route: 062
     Dates: start: 20121203, end: 20121204
  3. PROACTIV DARK SPOT CORRECTOR [Suspect]
     Indication: ACNE
     Route: 062
     Dates: start: 20121203, end: 20121204
  4. BENADRYL [Concomitant]

REACTIONS (3)
  - Swelling face [None]
  - Local swelling [None]
  - Rash [None]
